FAERS Safety Report 18105035 (Version 2)
Quarter: 2024Q1

REPORT INFORMATION
  Report Type: Report from Study
  Country: US (occurrence: US)
  Receive Date: 20200803
  Receipt Date: 20240123
  Transmission Date: 20240409
  Serious: No
  Sender: FDA-Public Use
  Company Number: US-NOVARTISTESTPH-NVSC2020US208993

PATIENT
  Sex: Female

DRUGS (25)
  1. COSENTYX [Suspect]
     Active Substance: SECUKINUMAB
     Indication: Guttate psoriasis
     Dosage: 300 MG, QMO
     Route: 058
  2. COSENTYX [Suspect]
     Active Substance: SECUKINUMAB
     Dosage: 300 MG, QMO
     Route: 058
  3. ABILIFY [Concomitant]
     Active Substance: ARIPIPRAZOLE
     Indication: Product used for unknown indication
     Dosage: 5 MG, UNKNOWN
     Route: 065
  4. AIMOVIG [Concomitant]
     Active Substance: ERENUMAB-AOOE
     Indication: Product used for unknown indication
     Dosage: 140 MG/ML, UNKNOWN
     Route: 065
  5. CEPHALEXIN [Concomitant]
     Active Substance: CEPHALEXIN
     Indication: Product used for unknown indication
     Dosage: UNK
     Route: 065
  6. ECONAZOLE NITRATE [Concomitant]
     Active Substance: ECONAZOLE NITRATE
     Indication: Product used for unknown indication
     Dosage: UNK
     Route: 065
  7. GABAPENTIN [Concomitant]
     Active Substance: GABAPENTIN
     Indication: Product used for unknown indication
     Dosage: 300 MG, UNKNOWN
     Route: 065
  8. GENTAMICIN SULFATE [Concomitant]
     Active Substance: GENTAMICIN SULFATE
     Indication: Product used for unknown indication
     Dosage: UNK
     Route: 065
  9. LITHIUM CARBONATE [Concomitant]
     Active Substance: LITHIUM CARBONATE
     Indication: Product used for unknown indication
     Dosage: UNK
     Route: 065
  10. MIDODRINE HYDROCHLORIDE [Concomitant]
     Active Substance: MIDODRINE HYDROCHLORIDE
     Indication: Product used for unknown indication
     Dosage: 10 MG, UNKNOWN
     Route: 065
  11. MODAFINIL [Concomitant]
     Active Substance: MODAFINIL
     Indication: Product used for unknown indication
     Dosage: 200 MG, UNKNOWN
     Route: 065
  12. VITAMINS [Concomitant]
     Active Substance: VITAMINS
     Indication: Product used for unknown indication
     Dosage: UNK
     Route: 065
  13. NORCO [Concomitant]
     Active Substance: ACETAMINOPHEN\HYDROCODONE BITARTRATE
     Indication: Product used for unknown indication
     Dosage: 1 DF (5-325 MG), UNKNOWN
     Route: 065
  14. PREDNISONE [Concomitant]
     Active Substance: PREDNISONE
     Indication: Product used for unknown indication
     Dosage: 10 MG, UNKNOWN
     Route: 065
  15. SPIRIVA [Concomitant]
     Active Substance: TIOTROPIUM BROMIDE MONOHYDRATE
     Indication: Product used for unknown indication
     Dosage: 1 DF (18 MCG), UNKNOWN
     Route: 065
  16. SUMATRIPTAN SUCCINATE [Concomitant]
     Active Substance: SUMATRIPTAN SUCCINATE
     Indication: Product used for unknown indication
     Dosage: UNK
     Route: 065
  17. SYMBICORT [Concomitant]
     Active Substance: BUDESONIDE\FORMOTEROL FUMARATE DIHYDRATE
     Indication: Product used for unknown indication
     Dosage: 1 DF (160-4.5 MCG), UNKNOWN
     Route: 065
  18. TOPIRAMATE [Concomitant]
     Active Substance: TOPIRAMATE
     Indication: Product used for unknown indication
     Dosage: 200 MG, UNKNOWN
     Route: 065
  19. TOVIAZ [Concomitant]
     Active Substance: FESOTERODINE FUMARATE
     Indication: Product used for unknown indication
     Dosage: 8 MG, UNKNOWN
     Route: 065
  20. TRIAMCINOLONE [Concomitant]
     Active Substance: TRIAMCINOLONE
     Indication: Product used for unknown indication
     Dosage: UNK
     Route: 065
  21. VENTOLIN HFA [Concomitant]
     Active Substance: ALBUTEROL SULFATE
     Indication: Product used for unknown indication
     Dosage: UNK
     Route: 065
  22. VITAMIN B12 [Concomitant]
     Active Substance: CYANOCOBALAMIN
     Indication: Product used for unknown indication
     Dosage: UNK
     Route: 065
  23. XANAX [Concomitant]
     Active Substance: ALPRAZOLAM
     Indication: Product used for unknown indication
     Dosage: 0.5 MG, UNKNOWN
     Route: 065
  24. VRAYLAR [Concomitant]
     Active Substance: CARIPRAZINE
     Indication: Product used for unknown indication
     Dosage: 1.5 MG
     Route: 065
  25. CEFUROXIME AXETIL [Concomitant]
     Active Substance: CEFUROXIME AXETIL
     Indication: Product used for unknown indication
     Dosage: UNKNOWN
     Route: 065

REACTIONS (1)
  - Migraine [Unknown]
